FAERS Safety Report 4589357-9 (Version None)
Quarter: 2005Q1

REPORT INFORMATION
  Report Type: 
  Country: None (occurrence: None)
  Receive Date: 20050216
  Receipt Date: 20050204
  Transmission Date: 20050727
  Serious: Yes (Hospitalization)
  Sender: FDA-Public Use
  Company Number: 2005-BP-01831BP

PATIENT
  Age: 78 Year
  Sex: Female

DRUGS (10)
  1. ATROVENT [Suspect]
     Indication: CHRONIC OBSTRUCTIVE PULMONARY DISEASE
     Dosage: 216 MCG (18 MCG, 3 PUFFS (18 MCG) Q 4 HOURS), IH
     Route: 055
     Dates: end: 20050101
  2. ATROVENT [Suspect]
     Indication: CHRONIC OBSTRUCTIVE PULMONARY DISEASE
     Dosage: 216 MCG (18 MCG, 3 PUFFS (18 MCG) Q 4 HOURS), IH
     Route: 055
     Dates: start: 20050101
  3. ALBUTEROL [Concomitant]
  4. COZAAR [Concomitant]
  5. PLETAL [Concomitant]
  6. LIPITOR [Concomitant]
  7. ACETYLSALICYLIC ACID SRT [Concomitant]
  8. CENTRUM (CENTRUM) [Concomitant]
  9. OSCAL (CALCIUM CARBONATE) [Concomitant]
  10. OXYGEN (OXYGEN) [Concomitant]

REACTIONS (2)
  - DYSGEUSIA [None]
  - SKIN DISCOLOURATION [None]
